FAERS Safety Report 19018140 (Version 1)
Quarter: 2021Q1

REPORT INFORMATION
  Report Type: Spontaneous
  Country: US (occurrence: US)
  Receive Date: 20210317
  Receipt Date: 20210317
  Transmission Date: 20210420
  Serious: No
  Sender: FDA-Public Use
  Company Number: US-BAYER-2021-106419

PATIENT
  Age: 78 Year

DRUGS (1)
  1. MIRALAX [Suspect]
     Active Substance: POLYETHYLENE GLYCOL 3350
     Dosage: UNK UNK, QD
     Route: 048
     Dates: start: 2019

REACTIONS (3)
  - Somnolence [Unknown]
  - Hypotension [None]
  - Fatigue [Unknown]

NARRATIVE: CASE EVENT DATE: 2019
